FAERS Safety Report 9057464 (Version 1)
Quarter: 2013Q1

REPORT INFORMATION
  Report Type: Spontaneous
  Country: CH (occurrence: CH)
  Receive Date: 20130204
  Receipt Date: 20130204
  Transmission Date: 20140127
  Serious: Yes (Other)
  Sender: FDA-Public Use
  Company Number: CH-PFIZER INC-2013043355

PATIENT
  Age: 60 Year
  Sex: Male

DRUGS (1)
  1. SUTENT [Suspect]
     Indication: GASTROINTESTINAL STROMAL TUMOUR
     Dosage: 37.5 MG, 1X/DAY
     Dates: start: 20110916, end: 201211

REACTIONS (6)
  - Pneumonia [Unknown]
  - Haematotoxicity [Unknown]
  - Eyelid oedema [Unknown]
  - Hypertension [Unknown]
  - Decreased appetite [Unknown]
  - Fatigue [Unknown]
